FAERS Safety Report 9981825 (Version 1)
Quarter: 2014Q1

REPORT INFORMATION
  Report Type: Spontaneous
  Country: US (occurrence: None)
  Receive Date: 20140306
  Receipt Date: 20140306
  Transmission Date: 20141002
  Serious: Yes (Hospitalization)
  Sender: FDA-Public Use
  Company Number: None

PATIENT
  Age: 68 Year
  Sex: Male
  Weight: 103.6 kg

DRUGS (3)
  1. VANCOMYCIN [Suspect]
     Indication: CELLULITIS
     Route: 042
     Dates: start: 20140108, end: 20140109
  2. VANCOMYCIN [Suspect]
     Indication: OSTEOMYELITIS
     Route: 042
     Dates: start: 20140108, end: 20140109
  3. LISINOPRIL [Suspect]
     Indication: HYPERTENSION
     Route: 048
     Dates: start: 20130314, end: 20140117

REACTIONS (5)
  - Renal injury [None]
  - Hyperkalaemia [None]
  - Diarrhoea [None]
  - Blood urea increased [None]
  - Blood creatinine increased [None]
